FAERS Safety Report 4706376-X (Version None)
Quarter: 2005Q2

REPORT INFORMATION
  Report Type: 
  Country: None (occurrence: None)
  Receive Date: 20050208
  Receipt Date: 20050208
  Transmission Date: 20051028
  Serious: No
  Sender: FDA-Public Use
  Company Number: None

PATIENT
  Sex: Female
  Weight: 58.9676 kg

DRUGS (1)
  1. XANAX [Suspect]
     Dosage: .5MG TID

REACTIONS (1)
  - ABDOMINAL DISCOMFORT [None]
